FAERS Safety Report 6270891-0 (Version None)
Quarter: 2009Q3

REPORT INFORMATION
  Report Type: 
  Country: None (occurrence: None)
  Receive Date: 20090715
  Receipt Date: 20090708
  Transmission Date: 20100115
  Serious: Yes (Hospitalization)
  Sender: FDA-Public Use
  Company Number: 20096754

PATIENT
  Sex: Female

DRUGS (1)
  1. LIORESAL [Suspect]
     Indication: MUSCLE SPASTICITY
     Dosage: 2957 MCG, DAILY, INTRATHECAL
     Route: 037

REACTIONS (5)
  - DISCOMFORT [None]
  - EMOTIONAL DISTRESS [None]
  - MUSCLE SPASTICITY [None]
  - PYREXIA [None]
  - TACHYCARDIA [None]
